FAERS Safety Report 4288566-6 (Version None)
Quarter: 2004Q1

REPORT INFORMATION
  Report Type: 
  Country: None (occurrence: None)
  Receive Date: 20040204
  Receipt Date: 20040123
  Transmission Date: 20041129
  Serious: Yes (Life-Threatening)
  Sender: FDA-Public Use
  Company Number: 200311289JP

PATIENT
  Age: 48 Year
  Sex: Male

DRUGS (4)
  1. ARAVA [Suspect]
     Indication: RHEUMATOID ARTHRITIS
     Dosage: 100 MG PO
     Route: 048
     Dates: start: 20030923, end: 20030925
  2. ARAVA [Suspect]
     Indication: RHEUMATOID ARTHRITIS
     Dosage: 20 MG PO
     Route: 048
     Dates: start: 20030926, end: 20031008
  3. RHEUMATREX [Concomitant]
  4. ORCL [Concomitant]

REACTIONS (8)
  - DIARRHOEA [None]
  - ERYTHEMA [None]
  - HOARSENESS [None]
  - INTERSTITIAL LUNG DISEASE [None]
  - NAUSEA [None]
  - PNEUMOCYSTIS CARINII PNEUMONIA [None]
  - PRURITUS [None]
  - RASH [None]
